FAERS Safety Report 9518827 (Version 1)
Quarter: 2013Q3

REPORT INFORMATION
  Report Type: Spontaneous
  Country: US (occurrence: None)
  Receive Date: 20130910
  Receipt Date: 20130910
  Transmission Date: 20140515
  Serious: Yes (Life-Threatening, Hospitalization)
  Sender: FDA-Public Use
  Company Number: None

PATIENT
  Age: 76 Year
  Sex: Female
  Weight: 71 kg

DRUGS (7)
  1. WARFARIN [Suspect]
     Indication: THROMBOSIS PROPHYLAXIS
     Dosage: 0.5 TABLETS  QD ORAL
     Route: 048
     Dates: start: 20130701, end: 20130902
  2. NEXIUM [Concomitant]
  3. LEVOTHYROXINE [Concomitant]
  4. MULTIVITAMIN WITH MINERALS [Concomitant]
  5. PRAVASTATIN [Concomitant]
  6. METOPROLOL SUCCINATE [Concomitant]
  7. POTASSIUM CHLORIDE [Concomitant]

REACTIONS (5)
  - Syncope [None]
  - Abdominal pain [None]
  - Back pain [None]
  - Retroperitoneal haematoma [None]
  - Anaemia [None]
